FAERS Safety Report 10201093 (Version 1)
Quarter: 2014Q2

REPORT INFORMATION
  Report Type: Spontaneous
  Country: US (occurrence: US)
  Receive Date: 20140528
  Receipt Date: 20140528
  Transmission Date: 20141212
  Serious: No
  Sender: FDA-Public Use
  Company Number: US-ASTRAZENECA-2014SE35401

PATIENT
  Sex: Female

DRUGS (2)
  1. OMEPRAZOLE PRESCRIPTION [Suspect]
     Route: 048
  2. PRILOSEC OTC [Suspect]
     Dosage: UNK
     Route: 048

REACTIONS (3)
  - Gastrooesophageal reflux disease [Unknown]
  - Gastric disorder [Unknown]
  - Abdominal discomfort [Unknown]
